FAERS Safety Report 14664716 (Version 3)
Quarter: 2019Q2

REPORT INFORMATION
  Report Type: Report from Study
  Country: US (occurrence: US)
  Receive Date: 20180321
  Receipt Date: 20190503
  Transmission Date: 20190711
  Serious: Yes (Hospitalization)
  Sender: FDA-Public Use
  Company Number: US-ACTELION-A-US2018-169296

PATIENT
  Sex: Female

DRUGS (5)
  1. VELTASSA [Concomitant]
     Active Substance: PATIROMER
  2. OPSUMIT [Suspect]
     Active Substance: MACITENTAN
     Indication: PULMONARY ARTERIAL HYPERTENSION
     Dosage: 10 MG
     Route: 048
  3. OPSUMIT [Suspect]
     Active Substance: MACITENTAN
     Dosage: 10 MG
     Route: 048
  4. ELIQUIS [Concomitant]
     Active Substance: APIXABAN
  5. VIRT-CAPS [Concomitant]
     Active Substance: ASCORBIC ACID\BIOTIN\CALCIUM PANTOTHENATE\CYANOCOBALAMIN\FOLIC ACID\NIACINAMIDE\PYRIDOXINE HYDROCHLORIDE\RIBOFLAVIN\THIAMINE MONONITRATE

REACTIONS (4)
  - Cardiac failure congestive [Unknown]
  - Memory impairment [Recovered/Resolved]
  - Myocardial infarction [Unknown]
  - Product dose omission [Recovered/Resolved]
